FAERS Safety Report 4933517-1 (Version None)
Quarter: 2006Q1

REPORT INFORMATION
  Report Type: 
  Country: None (occurrence: None)
  Receive Date: 20060306
  Receipt Date: 20060217
  Transmission Date: 20060701
  Serious: Yes (Hospitalization)
  Sender: FDA-Public Use
  Company Number: US-AMGEN-US169415

PATIENT
  Sex: Male
  Weight: 70 kg

DRUGS (14)
  1. ARANESP [Suspect]
     Indication: RENAL FAILURE CHRONIC
     Route: 058
     Dates: start: 20050901, end: 20060217
  2. PREDNISONE [Concomitant]
  3. AMLODIPINE [Concomitant]
  4. CELLCEPT [Concomitant]
  5. LASIX [Concomitant]
  6. METOPROLOL [Concomitant]
  7. MINOXIDIL [Concomitant]
  8. CLONIDINE [Concomitant]
  9. PHOSLO [Concomitant]
  10. ROCALTROL [Concomitant]
  11. SODIUM BICARBONATE [Concomitant]
  12. INSULIN [Concomitant]
  13. PREVACID [Concomitant]
  14. INH [Concomitant]

REACTIONS (9)
  - APLASTIC ANAEMIA [None]
  - ASCITES [None]
  - BLOOD CREATININE INCREASED [None]
  - BLOOD PARATHYROID HORMONE INCREASED [None]
  - OEDEMA [None]
  - PERICARDIAL EFFUSION [None]
  - THERAPEUTIC RESPONSE DECREASED [None]
  - VITAMIN B12 INCREASED [None]
  - WHITE BLOOD CELL COUNT DECREASED [None]
